FAERS Safety Report 13697542 (Version 1)
Quarter: 2017Q2

REPORT INFORMATION
  Report Type: Spontaneous
  Country: US (occurrence: US)
  Receive Date: 20170628
  Receipt Date: 20170628
  Transmission Date: 20170830
  Serious: Yes (Life-Threatening, Disabling)
  Sender: FDA-Public Use
  Company Number: None

PATIENT
  Age: 86 Year
  Sex: Male
  Weight: 70.37 kg

DRUGS (19)
  1. ISENTRESS [Concomitant]
     Active Substance: RALTEGRAVIR POTASSIUM
  2. ASPIRIN. [Concomitant]
     Active Substance: ASPIRIN
  3. IRON [Concomitant]
     Active Substance: IRON
  4. COQ10 [Concomitant]
     Active Substance: UBIDECARENONE
  5. GLIPIZIDE. [Concomitant]
     Active Substance: GLIPIZIDE
  6. OMEGA 3 [Concomitant]
     Active Substance: OMEGA-3 FATTY ACIDS
  7. MULTIVITAMIN [Concomitant]
     Active Substance: VITAMINS
  8. ELIQUIS [Concomitant]
     Active Substance: APIXABAN
  9. OMEPRAZOLE. [Concomitant]
     Active Substance: OMEPRAZOLE
  10. ABACAVIR. [Concomitant]
     Active Substance: ABACAVIR
  11. EPIVIR [Concomitant]
     Active Substance: LAMIVUDINE
  12. TRIUMEQ [Suspect]
     Active Substance: ABACAVIR SULFATE\DOLUTEGRAVIR SODIUM\LAMIVUDINE
     Indication: HIV INFECTION
     Dosage: 600/500/300 MG
     Route: 048
     Dates: start: 201611
  13. LIPITOR [Concomitant]
     Active Substance: ATORVASTATIN CALCIUM
  14. VALSARTAN AND HYDROCHLOROTHIAZIDE [Concomitant]
     Active Substance: HYDROCHLOROTHIAZIDE\VALSARTAN
  15. CARVEDILOL. [Concomitant]
     Active Substance: CARVEDILOL
  16. CREON [Concomitant]
     Active Substance: PANCRELIPASE AMYLASE\PANCRELIPASE LIPASE\PANCRELIPASE PROTEASE
  17. VIT. B,C,D [Concomitant]
  18. RESTASIS [Concomitant]
     Active Substance: CYCLOSPORINE
  19. LASIX [Concomitant]
     Active Substance: FUROSEMIDE

REACTIONS (2)
  - Blood urea increased [None]
  - Glomerular filtration rate increased [None]

NARRATIVE: CASE EVENT DATE: 20170523
